FAERS Safety Report 5657879-5 (Version None)
Quarter: 2008Q1

REPORT INFORMATION
  Report Type: 
  Country: None (occurrence: None)
  Receive Date: 20080305
  Receipt Date: 20080222
  Transmission Date: 20080703
  Serious: Yes (Death, Life-Threatening, Hospitalization, Disabling, Other)
  Sender: FDA-Public Use
  Company Number: TR-JNJFOC-20070305165

PATIENT
  Age: 64 Year
  Sex: Female
  Weight: 74 kg

DRUGS (6)
  1. DECITABINE (DECITABINE) LYOPHILIZED POWDER [Suspect]
     Indication: DRUG USE FOR UNKNOWN INDICATION
     Dosage: 225 MG, INTRAVENOUS
     Route: 042
     Dates: start: 20070217, end: 20070219
  2. PIPERACILLIN TAZOBACTAM (PIP/TAZO) [Concomitant]
  3. AMIKACIN [Concomitant]
  4. PRIMAXIN [Concomitant]
  5. NETILMICIN SULFATE [Concomitant]
  6. DEFEROXAMINE  (DEFEROXAMINE) [Concomitant]

REACTIONS (13)
  - ACTIVATED PARTIAL THROMBOPLASTIN TIME PROLONGED [None]
  - CAECITIS [None]
  - DISEASE PROGRESSION [None]
  - FEBRILE NEUTROPENIA [None]
  - FIBRIN D DIMER INCREASED [None]
  - HAEMORRHAGE INTRACRANIAL [None]
  - LIVER FUNCTION TEST ABNORMAL [None]
  - PLATELET COUNT DECREASED [None]
  - PROTHROMBIN TIME PROLONGED [None]
  - PSEUDOMONAS INFECTION [None]
  - RENAL IMPAIRMENT [None]
  - SEPTIC SHOCK [None]
  - WHITE BLOOD CELL COUNT DECREASED [None]
